FAERS Safety Report 7708629 (Version 9)
Quarter: 2015Q4

REPORT INFORMATION
  Report Type: Spontaneous
  Country: US (occurrence: US)
  Receive Date: 20101214
  Receipt Date: 20151127
  Transmission Date: 20160305
  Serious: Yes (Hospitalization, Other)
  Sender: FDA-Public Use
  Company Number: US-ASTRAZENECA-2010SE13681

PATIENT
  Age: 910 Month
  Sex: Female
  Weight: 50.8 kg

DRUGS (3)
  1. CRESTOR [Suspect]
     Active Substance: ROSUVASTATIN CALCIUM
     Indication: BLOOD CHOLESTEROL ABNORMAL
     Route: 048
  2. NEXIUM [Suspect]
     Active Substance: ESOMEPRAZOLE MAGNESIUM
     Indication: BARRETT^S OESOPHAGUS
     Route: 048
     Dates: start: 2001
  3. CRESTOR [Suspect]
     Active Substance: ROSUVASTATIN CALCIUM
     Indication: BLOOD CHOLESTEROL ABNORMAL
     Route: 048
     Dates: start: 201001

REACTIONS (21)
  - Drug dose omission [Recovered/Resolved]
  - Cardiac failure congestive [Unknown]
  - Back pain [Recovering/Resolving]
  - Dysphonia [Unknown]
  - Spinal deformity [Unknown]
  - Fatigue [Unknown]
  - Memory impairment [Unknown]
  - Fall [Unknown]
  - Body height decreased [Unknown]
  - Abdominal pain upper [Unknown]
  - Gastritis [Unknown]
  - Dyspnoea [Unknown]
  - Musculoskeletal disorder [Unknown]
  - Regurgitation [Unknown]
  - Cataract [Unknown]
  - Weight decreased [Unknown]
  - Therapeutic response unexpected [Unknown]
  - Blindness unilateral [Unknown]
  - Visual impairment [Unknown]
  - Pain in extremity [Recovering/Resolving]
  - Off label use [Unknown]

NARRATIVE: CASE EVENT DATE: 201104
